FAERS Safety Report 20956223 (Version 1)
Quarter: 2022Q2

REPORT INFORMATION
  Report Type: Spontaneous
  Country: NL (occurrence: NL)
  Receive Date: 20220614
  Receipt Date: 20220614
  Transmission Date: 20220721
  Serious: Yes (Hospitalization, Congenital Anomaly)
  Sender: FDA-Public Use
  Company Number: None

PATIENT

DRUGS (2)
  1. LETROZOLE [Suspect]
     Active Substance: LETROZOLE
     Dosage: 1DD FOR 5 DAYS
     Route: 064
     Dates: start: 202112
  2. METHYLDOPA [Concomitant]
     Active Substance: METHYLDOPA
     Dosage: 3DD 500MG

REACTIONS (2)
  - Foetal exposure during pregnancy [Unknown]
  - Congenital central nervous system anomaly [Unknown]

NARRATIVE: CASE EVENT DATE: 20220303
